FAERS Safety Report 4415913-4 (Version None)
Quarter: 2004Q3

REPORT INFORMATION
  Report Type: 
  Country: None (occurrence: None)
  Receive Date: 20040805
  Receipt Date: 20040604
  Transmission Date: 20050211
  Serious: No
  Sender: FDA-Public Use
  Company Number: US-GLAXOSMITHKLINE-A0513468A

PATIENT
  Age: 64 Year
  Sex: Female

DRUGS (8)
  1. AVANDAMET [Suspect]
     Route: 048
     Dates: start: 20040526
  2. SYNTHROID [Concomitant]
  3. LISINOPRIL [Concomitant]
  4. OXYCONTIN [Concomitant]
  5. VICODIN [Concomitant]
  6. AMITRIPTYLINE HCL [Concomitant]
  7. VALIUM [Concomitant]
  8. OXYCODONE HCL [Concomitant]

REACTIONS (1)
  - NAUSEA [None]
